FAERS Safety Report 7317316-1 (Version None)
Quarter: 2011Q1

REPORT INFORMATION
  Report Type: 
  Country: None (occurrence: None)
  Receive Date: 20110226
  Receipt Date: 20101021
  Transmission Date: 20110831
  Serious: No
  Sender: FDA-Public Use
  Company Number: US-ALLERGAN-1013559US

PATIENT
  Age: 63 Year
  Sex: Female

DRUGS (3)
  1. BOTOX COSMETIC [Suspect]
     Indication: SKIN WRINKLING
     Dosage: UNK
     Route: 030
     Dates: start: 20090707, end: 20090707
  2. BONIVA [Concomitant]
  3. JUVEDERM [Concomitant]
     Dosage: UNK

REACTIONS (2)
  - MASS [None]
  - SKIN DISCOLOURATION [None]
